FAERS Safety Report 12802913 (Version 1)
Quarter: 2016Q4

REPORT INFORMATION
  Report Type: Spontaneous
  Country: IT (occurrence: IT)
  Receive Date: 20161003
  Receipt Date: 20161003
  Transmission Date: 20170207
  Serious: Yes (Hospitalization)
  Sender: FDA-Public Use
  Company Number: IT-PFIZER INC-2016453402

PATIENT
  Age: 58 Year
  Sex: Male

DRUGS (3)
  1. ZOLOFT [Suspect]
     Active Substance: SERTRALINE HYDROCHLORIDE
     Dosage: 5 DF, SINGLE
     Route: 048
     Dates: start: 20010101, end: 20160829
  2. LORAZEPAM ABC [Concomitant]
     Active Substance: LORAZEPAM
     Dosage: 1 DF, UNK
     Route: 048
     Dates: start: 20010101, end: 20160829
  3. DELORAZEPAM ABC [Concomitant]
     Dosage: 20 GTT, UNK
     Dates: start: 20010101, end: 20160829

REACTIONS (4)
  - Drop attacks [Recovered/Resolved]
  - Overdose [Recovered/Resolved]
  - Gait disturbance [Recovered/Resolved]
  - Drug abuse [Recovered/Resolved]

NARRATIVE: CASE EVENT DATE: 20160829
